FAERS Safety Report 5408844-4 (Version None)
Quarter: 2007Q3

REPORT INFORMATION
  Report Type: 
  Country: None (occurrence: None)
  Receive Date: 20070808
  Receipt Date: 20070730
  Transmission Date: 20080115
  Serious: Yes (Hospitalization)
  Sender: FDA-Public Use
  Company Number: US-PFIZER INC-2007062620

PATIENT
  Sex: Male
  Weight: 107 kg

DRUGS (13)
  1. IRINOTECAN HCL [Suspect]
     Indication: GLIOBLASTOMA MULTIFORME
     Route: 042
     Dates: start: 20070711, end: 20070711
  2. IRINOTECAN HCL [Suspect]
     Route: 042
     Dates: start: 20070718, end: 20070718
  3. IRINOTECAN HCL [Suspect]
     Route: 042
  4. TEMODAR [Suspect]
     Indication: GLIOBLASTOMA MULTIFORME
     Route: 048
  5. DEXAMETHASONE 0.5MG TAB [Concomitant]
     Route: 048
  6. BENAZEPRIL HYDROCHLORIDE [Concomitant]
     Route: 048
  7. ZANTAC 150 [Concomitant]
     Route: 048
  8. FINASTERIDE [Concomitant]
     Route: 048
  9. HYDROCHLOROTHIAZIDE [Concomitant]
  10. POTASSIUM CHLORIDE [Concomitant]
  11. COREG [Concomitant]
  12. METFORMIN HCL [Concomitant]
  13. CRESTOR [Concomitant]

REACTIONS (2)
  - HYPONATRAEMIA [None]
  - NEUTROPENIA [None]
